FAERS Safety Report 18116286 (Version 1)
Quarter: 2020Q3

REPORT INFORMATION
  Report Type: Spontaneous
  Country: FR (occurrence: FR)
  Receive Date: 20200805
  Receipt Date: 20200805
  Transmission Date: 20201103
  Serious: Yes (Life-Threatening)
  Sender: FDA-Public Use
  Company Number: FR-PURDUE-USA-2020-0160516

PATIENT
  Age: 44 Year
  Sex: Female

DRUGS (2)
  1. BROMAZEPAM [Suspect]
     Active Substance: BROMAZEPAM
     Indication: PRODUCT USED FOR UNKNOWN INDICATION
     Dosage: UNK
     Route: 065
  2. MORPHINE SULFATE (SIMILAR TO NDA 19?516) [Suspect]
     Active Substance: MORPHINE SULFATE
     Indication: PRODUCT USED FOR UNKNOWN INDICATION
     Dosage: UNK
     Route: 065

REACTIONS (6)
  - Miosis [Recovered/Resolved]
  - Drug abuse [Recovered/Resolved]
  - Respiratory distress [Recovered/Resolved]
  - Hypotension [Recovered/Resolved]
  - Coma [Recovered/Resolved]
  - Bradycardia [Recovered/Resolved]
